FAERS Safety Report 8902295 (Version 1)
Quarter: 2012Q4

REPORT INFORMATION
  Report Type: 
  Country: FR (occurrence: FR)
  Receive Date: 20121113
  Receipt Date: 20121113
  Transmission Date: 20130627
  Serious: Yes (Hospitalization)
  Sender: FDA-Public Use
  Company Number: PHHY2012FR104037

PATIENT
  Age: 55 Year
  Sex: Female

DRUGS (6)
  1. ZOMETA [Suspect]
     Dosage: 4 mg, UNK
     Route: 042
     Dates: start: 20120830
  2. ZELBORAF [Suspect]
     Indication: MALIGNANT MELANOMA
     Dosage: 240 mg, daily
     Route: 048
     Dates: start: 20120829
  3. TOPALGIC [Concomitant]
     Dosage: UNK UKN, UNK
  4. PARACETAMOL [Concomitant]
     Dosage: UNK UKN, UNK
  5. SELOKEN [Concomitant]
     Dosage: UNK UKN, UNK
  6. MOTILIUM [Concomitant]
     Dosage: UNK UKN, UNK

REACTIONS (6)
  - Acute generalised exanthematous pustulosis [Recovering/Resolving]
  - Erythema [Recovering/Resolving]
  - Pruritus [Recovered/Resolved with Sequelae]
  - Rash [Recovering/Resolving]
  - Eosinophilia [Recovered/Resolved with Sequelae]
  - Face oedema [Recovered/Resolved with Sequelae]
